FAERS Safety Report 26167529 (Version 1)
Quarter: 2025Q4

REPORT INFORMATION
  Report Type: Spontaneous
  Country: US (occurrence: US)
  Receive Date: 20251217
  Receipt Date: 20251217
  Transmission Date: 20260118
  Serious: No
  Sender: TEVA
  Company Number: US-TEVA-VS-3399831

PATIENT
  Age: 19 Year
  Sex: Female

DRUGS (1)
  1. UZEDY [Suspect]
     Active Substance: RISPERIDONE
     Indication: Product used for unknown indication
     Dosage: DOSE Q1M. (EVERY MONTH)
     Route: 065

REACTIONS (2)
  - Paranoia [Unknown]
  - Injection site discharge [Unknown]
